FAERS Safety Report 4876136-8 (Version None)
Quarter: 2005Q3

REPORT INFORMATION
  Report Type: 
  Country: None (occurrence: None)
  Receive Date: 20050815
  Receipt Date: 20050815
  Transmission Date: 20060218
  Serious: No
  Sender: FDA-Public Use
  Company Number: None

PATIENT
  Sex: Male
  Weight: 129.2752 kg

DRUGS (2)
  1. CELEXA [Suspect]
     Indication: DEPRESSION
     Dosage: 40 MG 1 Q DAY
  2. CITALOPRAM HYDROBROMIDE [Concomitant]

REACTIONS (1)
  - DRUG INEFFECTIVE [None]
